FAERS Safety Report 17567066 (Version 1)
Quarter: 2020Q1

REPORT INFORMATION
  Report Type: Spontaneous
  Country: IE (occurrence: IE)
  Receive Date: 20200320
  Receipt Date: 20200320
  Transmission Date: 20200409
  Serious: Yes (Death, Life-Threatening, Hospitalization)
  Sender: FDA-Public Use
  Company Number: IE-BAUSCH-BL-2020-008038

PATIENT
  Age: 84 Year
  Sex: Male

DRUGS (3)
  1. GENTAMICIN (GENERIC) [Suspect]
     Active Substance: GENTAMICIN
     Indication: ENDOCARDITIS
     Route: 042
     Dates: start: 20191127, end: 20191202
  2. PIPERACILLIN/TAZOBACTAM (G) [Concomitant]
     Indication: ENDOCARDITIS
     Dates: start: 20191121, end: 20191127
  3. VANCOMYCIN (G) [Concomitant]
     Active Substance: VANCOMYCIN
     Indication: ENDOCARDITIS
     Dates: start: 20191127, end: 20191212

REACTIONS (4)
  - Renal impairment [Fatal]
  - Nephritis [Fatal]
  - Antibiotic level above therapeutic [Unknown]
  - Acute kidney injury [Fatal]

NARRATIVE: CASE EVENT DATE: 201912
